FAERS Safety Report 10340528 (Version 3)
Quarter: 2014Q3

REPORT INFORMATION
  Report Type: Spontaneous
  Country: AU (occurrence: AU)
  Receive Date: 20140724
  Receipt Date: 20140902
  Transmission Date: 20150326
  Serious: Yes (Other)
  Sender: FDA-Public Use
  Company Number: AU-ASTRAZENECA-2014SE45301

PATIENT
  Age: 21529 Day
  Sex: Female

DRUGS (1)
  1. MARCAIN [Suspect]
     Active Substance: BUPIVACAINE HYDROCHLORIDE
     Indication: LOCAL ANAESTHESIA
     Dosage: 0.5 % WITH ADRENALIN 15 ML ONCE
     Route: 065
     Dates: start: 20140619, end: 20140619

REACTIONS (7)
  - Toxicity to various agents [Recovered/Resolved]
  - Paraesthesia oral [Recovered/Resolved]
  - Hyperacusis [Recovered/Resolved]
  - Hypersensitivity [Recovering/Resolving]
  - Tonic clonic movements [Recovering/Resolving]
  - Headache [Recovered/Resolved]
  - Dizziness [Recovered/Resolved]

NARRATIVE: CASE EVENT DATE: 20140619
